FAERS Safety Report 5144905-5 (Version None)
Quarter: 2006Q4

REPORT INFORMATION
  Report Type: 
  Country: None (occurrence: None)
  Receive Date: 20061107
  Receipt Date: 20061025
  Transmission Date: 20070319
  Serious: Yes (Hospitalization, Other)
  Sender: FDA-Public Use
  Company Number: PHBS2006JP16819

PATIENT
  Age: 64 Year
  Sex: Female

DRUGS (3)
  1. CYCLOSPORINE [Suspect]
     Indication: TEMPORAL ARTERITIS
     Dosage: 150 MG/D
     Route: 048
     Dates: start: 20020101
  2. PREDNISOLONE [Suspect]
     Indication: TEMPORAL ARTERITIS
     Dosage: 22.5 MG/D
     Route: 048
     Dates: start: 20020101
  3. METHOTREXATE [Suspect]
     Dosage: 7.5 MG/D
     Dates: start: 20020101

REACTIONS (3)
  - CYTOMEGALOVIRUS GASTROENTERITIS [None]
  - GASTRIC ULCER [None]
  - THROMBOPHLEBITIS [None]
